FAERS Safety Report 6989079-0 (Version None)
Quarter: 2010Q3

REPORT INFORMATION
  Report Type: 
  Country: None (occurrence: None)
  Receive Date: 20100916
  Receipt Date: 20100325
  Transmission Date: 20110219
  Serious: Yes (Other)
  Sender: FDA-Public Use
  Company Number: US-BAYER-201010672NA

PATIENT
  Age: 31 Year
  Sex: Female
  Weight: 100 kg

DRUGS (5)
  1. OCELLA [Suspect]
     Indication: ORAL CONTRACEPTION
     Dates: start: 20070301, end: 20090601
  2. YASMIN [Suspect]
     Indication: ORAL CONTRACEPTION
     Dates: start: 20070301, end: 20090601
  3. YAZ [Suspect]
     Indication: ORAL CONTRACEPTION
     Dates: start: 20070301, end: 20090601
  4. CELEXA [Concomitant]
  5. ANTIBIOTICS NOS [Concomitant]
     Indication: URINARY TRACT INFECTION

REACTIONS (3)
  - DISCOMFORT [None]
  - GALLBLADDER DISORDER [None]
  - PAIN [None]
